FAERS Safety Report 13325266 (Version 11)
Quarter: 2019Q1

REPORT INFORMATION
  Report Type: Spontaneous
  Country: US (occurrence: US)
  Receive Date: 20170310
  Receipt Date: 20190325
  Transmission Date: 20190417
  Serious: Yes (Hospitalization)
  Sender: FDA-Public Use
  Company Number: US-ACTELION-A-US2017-150951

PATIENT
  Age: 23 Year
  Sex: Male
  Weight: 68.03 kg

DRUGS (10)
  1. OPSUMIT [Suspect]
     Active Substance: MACITENTAN
     Indication: PULMONARY ARTERIAL HYPERTENSION
     Dosage: 10 MG, QD
     Route: 048
  2. ALDACTONE [Concomitant]
     Active Substance: SPIRONOLACTONE
  3. SILDENAFIL. [Concomitant]
     Active Substance: SILDENAFIL
  4. FUROSEMIDE. [Concomitant]
     Active Substance: FUROSEMIDE
  5. CANNABIS [Suspect]
     Active Substance: CANNABIS SATIVA SUBSP. INDICA TOP
     Indication: PRODUCT USED FOR UNKNOWN INDICATION
     Route: 065
  6. COUMADIN [Concomitant]
     Active Substance: WARFARIN SODIUM
  7. OPSUMIT [Suspect]
     Active Substance: MACITENTAN
     Dosage: 10 MG, QD
     Route: 048
  8. ZANTAC [Concomitant]
     Active Substance: RANITIDINE HYDROCHLORIDE
  9. REMODULIN [Concomitant]
     Active Substance: TREPROSTINIL
     Dosage: UNK
  10. DIGOXIN. [Concomitant]
     Active Substance: DIGOXIN

REACTIONS (14)
  - Sepsis [Recovering/Resolving]
  - Micrococcus infection [Recovering/Resolving]
  - Catheter site infection [Recovering/Resolving]
  - Lethargy [Recovered/Resolved]
  - Emergency care [Unknown]
  - Device dislocation [Recovered/Resolved]
  - Micrococcus test positive [Recovering/Resolving]
  - Staphylococcus test positive [Recovering/Resolving]
  - Blood cannabinoids increased [Recovered/Resolved]
  - Complication associated with device [Unknown]
  - Device connection issue [Unknown]
  - Haemoptysis [Unknown]
  - Bacteraemia [Recovering/Resolving]
  - Pulmonary hypertension [Recovered/Resolved]

NARRATIVE: CASE EVENT DATE: 20190124
